FAERS Safety Report 4923473-4 (Version None)
Quarter: 2006Q1

REPORT INFORMATION
  Report Type: 
  Country: None (occurrence: None)
  Receive Date: 20060227
  Receipt Date: 20060220
  Transmission Date: 20060701
  Serious: Yes (Other)
  Sender: FDA-Public Use
  Company Number: DE-JNJFOC-20060204807

PATIENT
  Age: 32 Year
  Sex: Female

DRUGS (1)
  1. REMICADE [Suspect]
     Indication: CROHN'S DISEASE
     Dosage: 2-3 YEARS
     Route: 042

REACTIONS (5)
  - DEPRESSION [None]
  - MEMORY IMPAIRMENT [None]
  - SPEECH DISORDER [None]
  - VERTIGO [None]
  - VISUAL DISTURBANCE [None]
